FAERS Safety Report 5151098-7 (Version None)
Quarter: 2006Q4

REPORT INFORMATION
  Report Type: 
  Country: None (occurrence: None)
  Receive Date: 20061115
  Receipt Date: 20060913
  Transmission Date: 20070319
  Serious: Yes (Other)
  Sender: FDA-Public Use
  Company Number: US-JNJFOC-20060903513

PATIENT
  Sex: Male
  Weight: 102.97 kg

DRUGS (6)
  1. DURAGESIC-100 [Suspect]
     Indication: PAIN
     Dosage: 2X50UG/HR PATCHES
     Route: 062
  2. LORTAB [Concomitant]
     Indication: BREAKTHROUGH PAIN
     Dosage: 10/500MG
     Route: 048
  3. CYMBALTA [Concomitant]
     Indication: DEPRESSION
     Route: 048
  4. ALLERX [Concomitant]
     Indication: SEASONAL ALLERGY
     Dosage: 1/2 IN AM, 1 IN PM
     Route: 048
  5. ENALAPRIL MALEATE [Concomitant]
     Route: 048
  6. HYDROCHLOROTHIAZIDE [Concomitant]
     Route: 048

REACTIONS (9)
  - ANXIETY [None]
  - APPLICATION SITE IRRITATION [None]
  - APPLICATION SITE SCAB [None]
  - APPLICATION SITE SCAR [None]
  - BLOOD TRIGLYCERIDES INCREASED [None]
  - CONSTIPATION [None]
  - HYPERTENSION [None]
  - SLEEP DISORDER [None]
  - TRANSIENT ISCHAEMIC ATTACK [None]
